FAERS Safety Report 8133115-5 (Version None)
Quarter: 2012Q1

REPORT INFORMATION
  Report Type: 
  Country: None (occurrence: None)
  Receive Date: 20120213
  Receipt Date: 20120207
  Transmission Date: 20120608
  Serious: Yes (Hospitalization, Other)
  Sender: FDA-Public Use
  Company Number: PHHO2009GB07409

PATIENT
  Sex: Female
  Weight: 55 kg

DRUGS (3)
  1. CERTICAN [Suspect]
     Indication: LUNG TRANSPLANT
     Dosage: 0.75 MG, QD
     Route: 048
     Dates: start: 20080103, end: 20080105
  2. CERTICAN [Suspect]
     Dosage: 0.75 MG, 0/0
     Route: 048
     Dates: end: 20101001
  3. MYCOPHENOLIC ACID [Suspect]
     Indication: LUNG TRANSPLANT
     Dosage: UNK
     Route: 048
     Dates: start: 20071126, end: 20071207

REACTIONS (10)
  - SPUTUM DISCOLOURED [None]
  - PYREXIA [None]
  - SUBCUTANEOUS EMPHYSEMA [None]
  - CHEST PAIN [None]
  - PNEUMONIA PNEUMOCOCCAL [None]
  - ANASTOMOTIC STENOSIS [None]
  - LOWER RESPIRATORY TRACT INFECTION [None]
  - PRODUCTIVE COUGH [None]
  - PNEUMONIA [None]
  - PNEUMOTHORAX [None]
